FAERS Safety Report 10200940 (Version 1)
Quarter: 2014Q2

REPORT INFORMATION
  Report Type: Spontaneous
  Country: US (occurrence: US)
  Receive Date: 20140528
  Receipt Date: 20140528
  Transmission Date: 20141212
  Serious: Yes (Other)
  Sender: FDA-Public Use
  Company Number: US-BAYER-2014-077676

PATIENT
  Age: 47 Year
  Sex: Female

DRUGS (5)
  1. YAZ [Suspect]
  2. LEXAPRO [Concomitant]
     Dosage: 10 MG, UNK
     Route: 048
     Dates: start: 20060715
  3. SERTRALINE [Concomitant]
     Dosage: 50 MG, UNK
     Route: 048
     Dates: start: 20060817
  4. VALIUM [DIAZEPAM] [Concomitant]
     Dosage: 5 MG, UNK
     Route: 048
     Dates: start: 20060817
  5. ZOLOFT [Concomitant]

REACTIONS (1)
  - Pulmonary embolism [None]
